FAERS Safety Report 23270286 (Version 2)
Quarter: 2023Q4

REPORT INFORMATION
  Report Type: Spontaneous
  Country: DE (occurrence: DE)
  Receive Date: 20231207
  Receipt Date: 20231228
  Transmission Date: 20240109
  Serious: Yes (Hospitalization, Other)
  Sender: FDA-Public Use
  Company Number: DE-SAMSUNG BIOEPIS-SB-2023-30871

PATIENT
  Age: 70 Year
  Sex: Male
  Weight: 55 kg

DRUGS (7)
  1. DOCETAXEL [Suspect]
     Active Substance: DOCETAXEL\DOCETAXEL ANHYDROUS
     Indication: Oesophageal adenocarcinoma
     Dosage: 70 MILLIGRAM(50 MG/M2, IV, D1/D15/D29 AND D43 PRE- AND POST OP)
     Route: 042
     Dates: start: 20230802
  2. LEUCOVORIN [Suspect]
     Active Substance: LEUCOVORIN\LEUCOVORIN CALCIUM
     Indication: Oesophageal adenocarcinoma
     Dosage: 370 MILLIGRAM(200 MG/M2, IV, D1/D15/D29 AND D43 PRE- AND POST OP)
     Route: 042
     Dates: start: 20230802
  3. OXALIPLATIN [Suspect]
     Active Substance: OXALIPLATIN
     Indication: Oesophageal adenocarcinoma
     Dosage: 85 MG/M2, IV D1/D15/D29 AND D43 PRE AND POST OP
     Route: 042
     Dates: start: 20230802
  4. FLUOROURACIL [Suspect]
     Active Substance: FLUOROURACIL
     Indication: Oesophageal adenocarcinoma
     Dosage: 4800 MILLIGRAM(2600 MG/M2, IV, D1/D15/D29 AND D43 PRE- AND POST OP)
     Route: 042
     Dates: start: 20230802
  5. PEMBROLIZUMAB [Suspect]
     Active Substance: PEMBROLIZUMAB
     Indication: Oesophageal adenocarcinoma
     Dosage: 200 MILLIGRAM THREE WEEKS(200 MG FLAT DOSE, IV D1/D22/D43 PRE AND POST OP, AFTERWARDS D1 Q3)
     Route: 042
     Dates: start: 20230802
  6. TRASTUZUMAB [Suspect]
     Active Substance: TRASTUZUMAB
     Indication: Oesophageal adenocarcinoma
     Dosage: 8 MILLIGRAM/KILOGRAM(D1)
     Route: 042
     Dates: start: 20230802
  7. TRASTUZUMAB [Suspect]
     Active Substance: TRASTUZUMAB
     Dosage: 6 MILLIGRAM/KILOGRAM THREE WEEK(DOSE: 414 MG, D22/D43)
     Route: 042
     Dates: start: 20230914

REACTIONS (4)
  - Gastrointestinal anastomotic leak [Recovered/Resolved]
  - Pyrexia [Recovered/Resolved]
  - Pleural effusion [Recovered/Resolved]
  - Product use in unapproved indication [Unknown]

NARRATIVE: CASE EVENT DATE: 20231109
